FAERS Safety Report 8479305-3 (Version None)
Quarter: 2012Q2

REPORT INFORMATION
  Report Type: 
  Country: None (occurrence: None)
  Receive Date: 20120629
  Receipt Date: 20120626
  Transmission Date: 20120825
  Serious: Yes (Hospitalization)
  Sender: FDA-Public Use
  Company Number: GB-GLAXOSMITHKLINE-B0809370A

PATIENT
  Sex: Female

DRUGS (10)
  1. ONDANSETRON [Concomitant]
     Dosage: 8MG AS REQUIRED
     Dates: start: 20120518, end: 20120520
  2. ACETAMINOPHEN [Concomitant]
     Dosage: 1G FOUR TIMES PER DAY
     Dates: start: 20120518
  3. LOPERAMIDE [Concomitant]
     Dosage: 2MG THREE TIMES PER DAY
     Dates: start: 20120518
  4. LANSOPRAZOLE [Concomitant]
     Dosage: 30MG TWICE PER DAY
     Dates: start: 20120518
  5. OXALIPLATIN [Suspect]
     Indication: ADENOCARCINOMA
     Dosage: 190MG CYCLIC
     Route: 042
     Dates: start: 20120511
  6. DIAMORPHINE [Concomitant]
     Dosage: 2.5MG AS REQUIRED
     Dates: start: 20120518
  7. LAPATINIB [Suspect]
     Indication: ADENOCARCINOMA
     Dosage: 1250MG PER DAY
     Route: 048
     Dates: start: 20120501
  8. CAPECITABINE [Suspect]
     Indication: ADENOCARCINOMA
     Dosage: 1300MG TWICE PER DAY
     Route: 048
     Dates: start: 20120511
  9. ENOXAPARIN SODIUM [Concomitant]
     Dosage: 40MG PER DAY
     Dates: start: 20120518, end: 20120521
  10. CYCLIZINE [Concomitant]
     Dosage: 50MG THREE TIMES PER DAY
     Route: 048
     Dates: start: 20120519

REACTIONS (2)
  - PAIN [None]
  - GASTROINTESTINAL DISORDER [None]
